FAERS Safety Report 14505466 (Version 2)
Quarter: 2018Q1

REPORT INFORMATION
  Report Type: Spontaneous
  Country: US (occurrence: US)
  Receive Date: 20180208
  Receipt Date: 20180307
  Transmission Date: 20180509
  Serious: No
  Sender: FDA-Public Use
  Company Number: US-BAYER-2018-025486

PATIENT
  Age: 39 Year
  Sex: Female
  Weight: 52.15 kg

DRUGS (2)
  1. CLARITIN [Suspect]
     Active Substance: LORATADINE
     Indication: HYPERSENSITIVITY
     Dosage: 1 DF, QD
     Dates: start: 20180131, end: 20180202
  2. CLARITIN [Suspect]
     Active Substance: LORATADINE
     Indication: NASOPHARYNGITIS
     Dosage: UNK

REACTIONS (2)
  - Wrong drug administered [Unknown]
  - Product packaging issue [None]

NARRATIVE: CASE EVENT DATE: 20180131
